FAERS Safety Report 18093430 (Version 2)
Quarter: 2023Q2

REPORT INFORMATION
  Report Type: Spontaneous
  Country: LT (occurrence: LT)
  Receive Date: 20200730
  Receipt Date: 20230519
  Transmission Date: 20230721
  Serious: Yes (Other)
  Sender: FDA-Public Use
  Company Number: LT-MYLANLABS-2020M1065824

PATIENT
  Age: 38 Year
  Sex: Female

DRUGS (12)
  1. INSULIN GLARGINE [Suspect]
     Active Substance: INSULIN GLARGINE
     Indication: Gestational diabetes
     Dosage: UNK
     Route: 065
  2. AMPICILLIN [Suspect]
     Active Substance: AMPICILLIN
     Indication: Infection prophylaxis
     Dosage: UNK
     Route: 065
     Dates: start: 20190922
  3. AMPICILLIN [Suspect]
     Active Substance: AMPICILLIN
     Dosage: UNK
     Route: 065
     Dates: start: 20191219
  4. AMPICILLIN [Suspect]
     Active Substance: AMPICILLIN
     Dosage: UNK
     Route: 065
  5. AZITHROMYCIN [Suspect]
     Active Substance: AZITHROMYCIN
     Indication: Infection prophylaxis
     Dosage: UNK
     Dates: start: 20190922
  6. AZITHROMYCIN [Suspect]
     Active Substance: AZITHROMYCIN
     Dosage: UNK
     Route: 065
     Dates: start: 20191219
  7. AZITHROMYCIN [Suspect]
     Active Substance: AZITHROMYCIN
     Dosage: UNK
     Route: 065
  8. AMOXICILLIN [Concomitant]
     Active Substance: AMOXICILLIN
     Indication: Infection prophylaxis
     Dosage: UNK
     Route: 065
     Dates: start: 20191221
  9. DEXAMETHASONE [Concomitant]
     Active Substance: DEXAMETHASONE
     Indication: Maternal therapy to enhance foetal lung maturity
     Dosage: 12 MILLIGRAM, BID
     Route: 065
     Dates: start: 20191219
  10. GENTAMICIN [Concomitant]
     Active Substance: GENTAMICIN
     Indication: Infection prophylaxis
     Dosage: UNK
     Route: 065
     Dates: start: 20191221
  11. METRONIDAZOLE [Concomitant]
     Active Substance: METRONIDAZOLE
     Indication: Infection prophylaxis
     Dosage: UNK
     Route: 065
     Dates: start: 20191221
  12. OXYTOCIN [Concomitant]
     Active Substance: OXYTOCIN
     Indication: Labour induction
     Dosage: UNK
     Route: 065
     Dates: start: 20191221

REACTIONS (2)
  - Abortion spontaneous [Unknown]
  - Maternal exposure during pregnancy [Recovered/Resolved]
